FAERS Safety Report 13873204 (Version 3)
Quarter: 2017Q3

REPORT INFORMATION
  Report Type: Report from Study
  Country: None (occurrence: NL)
  Receive Date: 20170816
  Receipt Date: 20170908
  Transmission Date: 20171127
  Serious: Yes (Hospitalization)
  Sender: FDA-Public Use
  Company Number: NL-ABBVIE-17K-114-2070799-00

PATIENT
  Age: 68 Year
  Sex: Male
  Weight: 80.5 kg

DRUGS (1)
  1. DUODOPA [Suspect]
     Active Substance: CARBIDOPA\LEVODOPA
     Indication: PARKINSON^S DISEASE
     Dosage: MORNING DOSE: 8; CONTINUOUS DOSE: 4.2; EXTRA DOSE: 3; NIGHT DOSE: 2.5
     Route: 050
     Dates: start: 20170301

REACTIONS (3)
  - Hip fracture [Recovering/Resolving]
  - Head injury [Recovering/Resolving]
  - Fall [Recovered/Resolved]

NARRATIVE: CASE EVENT DATE: 20170810
